FAERS Safety Report 7486244-3 (Version None)
Quarter: 2011Q2

REPORT INFORMATION
  Report Type: 
  Country: None (occurrence: None)
  Receive Date: 20110517
  Receipt Date: 20110304
  Transmission Date: 20111010
  Serious: No
  Sender: FDA-Public Use
  Company Number: A0916778A

PATIENT
  Age: 68 Year
  Sex: Male

DRUGS (13)
  1. VOTRIENT [Suspect]
     Indication: RENAL CANCER
     Dosage: 800MG PER DAY
     Route: 048
     Dates: start: 20101101, end: 20110201
  2. METOPROLOL SUCCINATE [Concomitant]
  3. DOXAZOSIN MESYLATE [Concomitant]
  4. LEVOTHYROXINE SODIUM [Concomitant]
  5. VICODIN [Concomitant]
  6. CLONAZEPAM [Concomitant]
  7. DIPHEN/ATROP [Concomitant]
  8. SENOKOT [Concomitant]
  9. CHERATUSSIN [Concomitant]
  10. PRILOSEC [Concomitant]
  11. CYCLOBENZAPRINE [Concomitant]
  12. FERROUS SULFATE TAB [Concomitant]
  13. ZOLPIDEM [Concomitant]

REACTIONS (1)
  - DRUG INEFFECTIVE [None]
